FAERS Safety Report 6882944-4 (Version None)
Quarter: 2010Q3

REPORT INFORMATION
  Report Type: 
  Country: None (occurrence: None)
  Receive Date: 20100729
  Receipt Date: 20100721
  Transmission Date: 20110219
  Serious: Yes (Other)
  Sender: FDA-Public Use
  Company Number: JP-ROCHE-717227

PATIENT
  Sex: Female
  Weight: 55 kg

DRUGS (14)
  1. TOCILIZUMAB [Suspect]
     Indication: RHEUMATOID ARTHRITIS
     Route: 041
     Dates: start: 20091002, end: 20091002
  2. TOCILIZUMAB [Suspect]
     Route: 041
     Dates: start: 20091030, end: 20091030
  3. TOCILIZUMAB [Suspect]
     Route: 041
     Dates: start: 20091127, end: 20091127
  4. TOCILIZUMAB [Suspect]
     Route: 041
     Dates: start: 20091224, end: 20091224
  5. TOCILIZUMAB [Suspect]
     Route: 041
     Dates: start: 20100122, end: 20100122
  6. TOCILIZUMAB [Suspect]
     Route: 041
     Dates: start: 20100219, end: 20100219
  7. TOCILIZUMAB [Suspect]
     Route: 041
     Dates: start: 20100319, end: 20100319
  8. TOCILIZUMAB [Suspect]
     Route: 041
     Dates: start: 20100416, end: 20100416
  9. TOCILIZUMAB [Suspect]
     Dosage: ACTION TAKEN: CONTINUED.
     Route: 041
     Dates: start: 20100514, end: 20100514
  10. RIMATIL [Concomitant]
     Route: 048
     Dates: start: 20000825
  11. PROGRAF [Concomitant]
     Dosage: DOSE FORM: PERORAL AGENT
     Route: 048
     Dates: start: 20091030
  12. ISCOTIN [Concomitant]
     Route: 048
     Dates: start: 20090925
  13. ZYLORIC [Concomitant]
     Route: 048
     Dates: start: 20091030
  14. GASTER D [Concomitant]
     Route: 048
     Dates: start: 20091030

REACTIONS (1)
  - SCHIZOPHRENIA [None]
